FAERS Safety Report 24549078 (Version 1)
Quarter: 2024Q4

REPORT INFORMATION
  Report Type: Spontaneous
  Country: IE (occurrence: IE)
  Receive Date: 20241025
  Receipt Date: 20241025
  Transmission Date: 20250114
  Serious: Yes (Other)
  Sender: RANBAXY
  Company Number: IE-SUN PHARMACEUTICAL INDUSTRIES LTD-2024R1-475444

PATIENT
  Age: 73 Year
  Sex: Female

DRUGS (1)
  1. FLURAZEPAM [Suspect]
     Active Substance: FLURAZEPAM HYDROCHLORIDE
     Indication: Generalised anxiety disorder
     Dosage: 60 MILLIGRAM, DAILY
     Route: 065

REACTIONS (1)
  - Agitated depression [Unknown]
